FAERS Safety Report 13236116 (Version 1)
Quarter: 2017Q1

REPORT INFORMATION
  Report Type: Spontaneous
  Country: JP (occurrence: JP)
  Receive Date: 20170215
  Receipt Date: 20170215
  Transmission Date: 20170428
  Serious: Yes (Hospitalization)
  Sender: FDA-Public Use
  Company Number: JP-EISAI MEDICAL RESEARCH-EC-2017-024831

PATIENT
  Age: 83 Year

DRUGS (2)
  1. ARICEPT [Suspect]
     Active Substance: DONEPEZIL HYDROCHLORIDE
     Indication: DEMENTIA
     Route: 048
  2. ARICEPT [Suspect]
     Active Substance: DONEPEZIL HYDROCHLORIDE
     Dosage: 2 WEEK SUPPLY OF 5 MG IN 2 DAYS
     Route: 048

REACTIONS (3)
  - Accidental overdose [Recovered/Resolved]
  - Hallucination, visual [Recovered/Resolved]
  - Hallucination [Recovered/Resolved]
